FAERS Safety Report 13238735 (Version 1)
Quarter: 2017Q1

REPORT INFORMATION
  Report Type: Spontaneous
  Country: US (occurrence: US)
  Receive Date: 20170216
  Receipt Date: 20170216
  Transmission Date: 20170428
  Serious: Yes (Other)
  Sender: FDA-Public Use
  Company Number: US-CLINIGEN GROUP PLC/ CLINIGEN HEALTHCARE LTD-E2B_00002075

PATIENT
  Age: 68 Year
  Sex: Male
  Weight: 84 kg

DRUGS (25)
  1. OXYCODONE [Concomitant]
     Active Substance: OXYCODONE
     Route: 065
  2. ETHYOL [Suspect]
     Active Substance: AMIFOSTINE
     Dosage: 500 MG 5XWK 1 DOSE(S)
     Route: 058
     Dates: start: 20030522, end: 20030522
  3. ETHYOL [Suspect]
     Active Substance: AMIFOSTINE
     Dosage: 500 MG 5XWK 8 DOSE(S)
     Route: 058
     Dates: start: 20030512, end: 20030521
  4. ETHYOL [Suspect]
     Active Substance: AMIFOSTINE
     Dosage: 500 MG 5XWK* 10 DOSE(S)
     Route: 058
     Dates: start: 20030512, end: 20030523
  5. ETHYOL [Suspect]
     Active Substance: AMIFOSTINE
     Dosage: 500 MG 5XWK 1 DOSE(S)
     Route: 058
     Dates: start: 20030522, end: 20030522
  6. ETHYOL [Suspect]
     Active Substance: AMIFOSTINE
     Dosage: 500 MG 5XWK 1 DOSE(S)
     Route: 058
     Dates: start: 20030522, end: 20030522
  7. CARAFATE (SUCRALFATE) [Concomitant]
     Route: 065
  8. BENADRYL [Concomitant]
     Active Substance: DIPHENHYDRAMINE HYDROCHLORIDE
     Route: 065
  9. HUMULIN L [Concomitant]
     Active Substance: INSULIN HUMAN
     Route: 065
  10. ETHYOL [Suspect]
     Active Substance: AMIFOSTINE
     Indication: PROPHYLAXIS
     Dosage: 500 MG 5XWK* 10 DOSE(S)
     Route: 058
     Dates: start: 20030512, end: 20030523
  11. ETHYOL [Suspect]
     Active Substance: AMIFOSTINE
     Dosage: 500 MG 5XWK* 10 DOSE(S)
     Route: 058
     Dates: start: 20030512, end: 20030523
  12. ETHYOL [Suspect]
     Active Substance: AMIFOSTINE
     Dosage: 500 MG 5XWK* 10 DOSE(S)
     Route: 058
     Dates: start: 20030512, end: 20030523
  13. ETHYOL [Suspect]
     Active Substance: AMIFOSTINE
     Dosage: 500 MG 5XWK 8 DOSE(S)
     Route: 058
     Dates: start: 20030512, end: 20030521
  14. ETHYOL [Suspect]
     Active Substance: AMIFOSTINE
     Dosage: 500 MG 5XWK 1 DOSE(S)
     Route: 058
     Dates: start: 20030523, end: 20030523
  15. PERCOCET [Concomitant]
     Active Substance: ACETAMINOPHEN\OXYCODONE HYDROCHLORIDE
     Route: 065
  16. SENOKOT [Concomitant]
     Active Substance: SENNOSIDES
     Route: 065
  17. COMPAZINE [Concomitant]
     Active Substance: PROCHLORPERAZINE MALEATE
     Route: 065
  18. ETHYOL [Suspect]
     Active Substance: AMIFOSTINE
     Dosage: 500 MG 5XWK 8 DOSE(S)
     Route: 058
     Dates: start: 20030512, end: 20030521
  19. ETHYOL [Suspect]
     Active Substance: AMIFOSTINE
     Dosage: 500 MG 5XWK 8 DOSE(S)
     Route: 058
     Dates: start: 20030512, end: 20030521
  20. ETHYOL [Suspect]
     Active Substance: AMIFOSTINE
     Dosage: 500 MG 5XWK 1 DOSE(S)
     Route: 058
     Dates: start: 20030522, end: 20030522
  21. ETHYOL [Suspect]
     Active Substance: AMIFOSTINE
     Dosage: 500 MG 5XWK 1 DOSE(S)
     Route: 058
     Dates: start: 20030523, end: 20030523
  22. CARBOPLATIN. [Concomitant]
     Active Substance: CARBOPLATIN
     Indication: NON-SMALL CELL LUNG CANCER
     Route: 065
  23. TAXOL [Concomitant]
     Active Substance: PACLITAXEL
     Indication: NON-SMALL CELL LUNG CANCER
     Route: 065
  24. ETHYOL [Suspect]
     Active Substance: AMIFOSTINE
     Dosage: 500 MG 5XWK 1 DOSE(S)
     Route: 058
     Dates: start: 20030523, end: 20030523
  25. ETHYOL [Suspect]
     Active Substance: AMIFOSTINE
     Dosage: 500 MG 5XWK 1 DOSE(S)
     Route: 058
     Dates: start: 20030523, end: 20030523

REACTIONS (4)
  - Dermatitis exfoliative [Recovered/Resolved]
  - Pruritus [Unknown]
  - Pyrexia [Unknown]
  - Injection site reaction [Unknown]

NARRATIVE: CASE EVENT DATE: 20030522
